FAERS Safety Report 4798181-3 (Version None)
Quarter: 2005Q4

REPORT INFORMATION
  Report Type: 
  Country: None (occurrence: None)
  Receive Date: 20051011
  Receipt Date: 20050923
  Transmission Date: 20060501
  Serious: Yes (Hospitalization)
  Sender: FDA-Public Use
  Company Number: 218259

PATIENT
  Age: 52 Year
  Sex: Male
  Weight: 98.5 kg

DRUGS (7)
  1. AVASTIN [Suspect]
     Indication: COLORECTAL CANCER
     Dosage: 490 MG Q2W, INTRAVENOUS
     Route: 042
     Dates: start: 20050919
  2. IRINOTECAN HCL [Suspect]
     Indication: COLORECTAL CANCER
     Dosage: 396 MG , Q2W, INTRAVENOUS
     Route: 042
     Dates: start: 20050919
  3. LEUCOVORIN CALCIUM [Suspect]
     Indication: COLORECTAL CANCER
     Dosage: 440 MG, Q2W, INTRAVENOUS
     Route: 042
     Dates: start: 20050919
  4. FLUOROURACIL [Suspect]
     Indication: COLORECTAL CANCER
     Dosage: 880 MG, Q2W, INTRAVENOUS
     Route: 042
     Dates: start: 20050919
  5. TYLENOL #3 (CANADA) (CODEINE PHOSPHATE, CAFFEINE, ACETAMINOPHEN) [Concomitant]
  6. SURFAK (DOCUSATE CALCIUM) [Concomitant]
  7. SENOKOT [Concomitant]

REACTIONS (4)
  - CHEST PAIN [None]
  - ELECTROCARDIOGRAM ST SEGMENT ABNORMAL [None]
  - ELECTROCARDIOGRAM T WAVE INVERSION [None]
  - PLEURITIC PAIN [None]
